FAERS Safety Report 6646268-2 (Version None)
Quarter: 2010Q1

REPORT INFORMATION
  Report Type: 
  Country: None (occurrence: None)
  Receive Date: 20100323
  Receipt Date: 20100312
  Transmission Date: 20100710
  Serious: Yes (Death)
  Sender: FDA-Public Use
  Company Number: JP-BAYER-200914858BYL

PATIENT
  Age: 74 Year
  Sex: Female
  Weight: 57 kg

DRUGS (10)
  1. NEXAVAR [Suspect]
     Indication: HEPATIC NEOPLASM MALIGNANT
     Dosage: TOTAL DAILY DOSE: 400 MG  UNIT DOSE: 200 MG
     Route: 048
     Dates: start: 20091120, end: 20100125
  2. INFLUENZA HA VACCINE [Suspect]
     Indication: ANTIVIRAL PROPHYLAXIS
     Route: 058
     Dates: start: 20100112, end: 20100122
  3. THYRADIN S [Concomitant]
     Route: 048
  4. PRIMPERAN INJ [Concomitant]
     Indication: NAUSEA
     Dosage: UNIT DOSE: 5 MG
     Route: 048
     Dates: start: 20091221, end: 20100125
  5. TENORMIN [Concomitant]
     Indication: HYPERTENSION
     Dosage: UNIT DOSE: 25 MG
     Route: 048
     Dates: start: 20091221, end: 20100125
  6. ADALAT CC [Concomitant]
     Indication: HYPERTENSION
     Dosage: UNIT DOSE: 20 MG
     Route: 048
     Dates: start: 20100108, end: 20100125
  7. JUVELA [Concomitant]
     Indication: PROPHYLAXIS
     Route: 061
     Dates: start: 20091120, end: 20100125
  8. ALDACTONE [Concomitant]
     Indication: OEDEMA
     Dosage: UNIT DOSE: 25 MG
     Route: 048
     Dates: start: 20100122, end: 20100125
  9. ADRIACIN [Concomitant]
     Indication: THERAPEUTIC EMBOLISATION
     Route: 013
     Dates: start: 20090907, end: 20090907
  10. LIPIODOL ULTRA-FLUIDE [Concomitant]
     Indication: THERAPEUTIC EMBOLISATION
     Route: 013
     Dates: start: 20090907, end: 20090907

REACTIONS (3)
  - DECREASED APPETITE [None]
  - INTERSTITIAL LUNG DISEASE [None]
  - RESPIRATORY FAILURE [None]
